FAERS Safety Report 24001824 (Version 1)
Quarter: 2024Q2

REPORT INFORMATION
  Report Type: Other
  Country: JP (occurrence: None)
  Receive Date: 20240622
  Receipt Date: 20240622
  Transmission Date: 20240716
  Serious: No
  Sender: FDA-Public Use
  Company Number: JP-Square Pharmaceuticals PLC-000031

PATIENT
  Age: 61 Year
  Sex: Male

DRUGS (4)
  1. MIRTAZAPINE [Suspect]
     Active Substance: MIRTAZAPINE
     Indication: Burning mouth syndrome
  2. ARIPIPRAZOLE [Suspect]
     Active Substance: ARIPIPRAZOLE
     Indication: Burning mouth syndrome
     Dosage: 2.0 MILLIGRAMS
  3. AMITRIPTYLINE [Suspect]
     Active Substance: AMITRIPTYLINE
     Indication: Burning mouth syndrome
     Dosage: 50 MILLIGRAMS
  4. MIRTAZAPINE [Suspect]
     Active Substance: MIRTAZAPINE
     Indication: Burning mouth syndrome
     Dosage: 10 MILLIGRAMS

REACTIONS (1)
  - Drug ineffective [Unknown]
